FAERS Safety Report 7421370-6 (Version None)
Quarter: 2011Q2

REPORT INFORMATION
  Report Type: 
  Country: None (occurrence: None)
  Receive Date: 20110418
  Receipt Date: 20110407
  Transmission Date: 20111010
  Serious: Yes (Hospitalization)
  Sender: FDA-Public Use
  Company Number: FR-BRISTOL-MYERS SQUIBB COMPANY-15678659

PATIENT
  Age: 77 Year
  Sex: Female

DRUGS (11)
  1. CEFPODOXIME PROXETIL [Concomitant]
     Route: 048
     Dates: start: 20101105, end: 20101120
  2. CARDENSIEL [Concomitant]
     Dosage: 5 MG TABS
     Route: 048
  3. PREVISCAN [Concomitant]
     Dosage: 1DF:0.75 TAB
     Dates: end: 20101202
  4. SOLUPRED [Concomitant]
     Route: 048
  5. INIPOMP [Concomitant]
     Route: 048
  6. GLUCOPHAGE [Suspect]
     Indication: TYPE 2 DIABETES MELLITUS
     Route: 048
  7. DIAMICRON [Concomitant]
     Dosage: 30 MG MODIFIED RELEASE TABS
     Route: 048
  8. CALCIPARINE [Concomitant]
     Route: 058
     Dates: start: 20101105
  9. LASIX [Concomitant]
     Dosage: 40 MG TABS
     Route: 048
  10. COVERSYL [Suspect]
     Indication: HYPERTENSION
     Dosage: TABS 2.5 MKG
     Route: 048
     Dates: end: 20101202
  11. LEVOTHYROX [Concomitant]

REACTIONS (4)
  - ILEUS PARALYTIC [None]
  - URINARY TRACT INFECTION [None]
  - RENAL FAILURE ACUTE [None]
  - PYELONEPHRITIS [None]
